FAERS Safety Report 12614964 (Version 1)
Quarter: 2016Q3

REPORT INFORMATION
  Report Type: Spontaneous
  Country: US (occurrence: US)
  Receive Date: 20160802
  Receipt Date: 20160802
  Transmission Date: 20161109
  Serious: No
  Sender: FDA-Public Use
  Company Number: US-PERRIGO-15US008972

PATIENT
  Age: 62 Year
  Sex: Male
  Weight: 68.27 kg

DRUGS (2)
  1. MINOXIDIL. [Suspect]
     Active Substance: MINOXIDIL
     Indication: ALOPECIA
     Dosage: 1 ML, QD AT BEDTIME
     Route: 061
     Dates: start: 20010613
  2. MINOXIDIL. [Suspect]
     Active Substance: MINOXIDIL
     Dosage: 1 ML, QD IN THE MORNING
     Route: 061

REACTIONS (4)
  - Seborrhoea [Unknown]
  - Drug effect decreased [Unknown]
  - Alopecia [Unknown]
  - Inappropriate schedule of drug administration [Not Recovered/Not Resolved]

NARRATIVE: CASE EVENT DATE: 20010613
